APPROVED DRUG PRODUCT: TRIMETHOPRIM
Active Ingredient: TRIMETHOPRIM
Strength: 200MG
Dosage Form/Route: TABLET;ORAL
Application: A070495 | Product #001
Applicant: SUN PHARMACEUTICAL INDUSTRIES INC
Approved: Sep 24, 1986 | RLD: No | RS: No | Type: DISCN